FAERS Safety Report 11310956 (Version 1)
Quarter: 2015Q3

REPORT INFORMATION
  Report Type: Spontaneous
  Country: FR (occurrence: FR)
  Receive Date: 20150726
  Receipt Date: 20150726
  Transmission Date: 20151125
  Serious: Yes (Hospitalization)
  Sender: FDA-Public Use
  Company Number: FR-ROCHE-1611735

PATIENT
  Age: 76 Year
  Sex: Male
  Weight: 66 kg

DRUGS (21)
  1. CYCLOPHOSPHAMIDE. [Concomitant]
     Active Substance: CYCLOPHOSPHAMIDE
     Route: 065
     Dates: start: 20150507
  2. MABTHERA [Suspect]
     Active Substance: RITUXIMAB
     Dosage: SECOND LINE OF TREATMENT 5 COURSES
     Route: 042
     Dates: start: 20060505, end: 20060919
  3. MABTHERA [Suspect]
     Active Substance: RITUXIMAB
     Dosage: FIFTH LINE OF TREATMENT 6 COURSES
     Route: 042
     Dates: start: 20101109, end: 20110222
  4. CARBOPLATINE [Concomitant]
     Active Substance: CARBOPLATIN
     Dosage: SECOND LINE OF TREATMENT 5 COURSES
     Route: 065
     Dates: start: 20060505, end: 20060919
  5. PREDNISONE. [Concomitant]
     Active Substance: PREDNISONE
     Dosage: ONE COURSE
     Route: 065
     Dates: start: 20150507
  6. VINCRISTINE [Concomitant]
     Active Substance: VINCRISTINE
     Dosage: ONE COURSE
     Route: 065
     Dates: start: 20150507
  7. METHYLPREDNISOLONE. [Concomitant]
     Active Substance: METHYLPREDNISOLONE
     Dosage: FIRST LINE OF TREATMENT 8 COURSES
     Route: 065
     Dates: start: 20030416, end: 20030909
  8. METHOTREXATE [Concomitant]
     Active Substance: METHOTREXATE
     Route: 065
     Dates: start: 20060505, end: 20060919
  9. HOLOXAN [Concomitant]
     Active Substance: IFOSFAMIDE
     Dosage: 1 COURSE
     Route: 065
     Dates: start: 20060505, end: 20060919
  10. REVLIMID [Suspect]
     Active Substance: LENALIDOMIDE
     Indication: DIFFUSE LARGE B-CELL LYMPHOMA
     Dosage: THIRD LINE OF TREATMENT 25 MG 26 CYCLES AS PART OF CELGENE STUDY.?DOSE REDUCED TO 15 MG AFTER 22 CYC
     Route: 048
     Dates: start: 20080208, end: 20100210
  11. ELOXATIN [Suspect]
     Active Substance: OXALIPLATIN
     Indication: DIFFUSE LARGE B-CELL LYMPHOMA
     Dosage: FIFTH LINE OF TREATMENT 6 COURSES
     Route: 041
     Dates: start: 20101109, end: 20110222
  12. GEMCITABINE [Suspect]
     Active Substance: GEMCITABINE\GEMCITABINE HYDROCHLORIDE
     Indication: DIFFUSE LARGE B-CELL LYMPHOMA
     Dosage: FIFTH LINE OF TREATMENT 6 COURSES
     Route: 041
     Dates: start: 20101109, end: 20110222
  13. VINCRISTINE [Concomitant]
     Active Substance: VINCRISTINE
     Dosage: FIRST LINE OF TREATMENT 8 COURSES.
     Route: 065
     Dates: start: 20030416, end: 20030909
  14. IFOSFAMIDE. [Concomitant]
     Active Substance: IFOSFAMIDE
     Dosage: SECOND LINE OF TREATMENT 5 COURSES
     Route: 065
     Dates: start: 20060505, end: 20060919
  15. ETOPOSIDE. [Concomitant]
     Active Substance: ETOPOSIDE
     Dosage: SECOND LINE OF TREATMENT 5 COURSES
     Route: 065
     Dates: start: 20060505, end: 20060919
  16. MABTHERA [Suspect]
     Active Substance: RITUXIMAB
     Indication: DIFFUSE LARGE B-CELL LYMPHOMA
     Dosage: FIRST LINE OF TREATMENT 8 COURSES.
     Route: 041
     Dates: start: 20030416, end: 20030909
  17. EUPANTOL [Concomitant]
     Active Substance: PANTOPRAZOLE SODIUM
     Route: 048
  18. CYCLOPHOSPHAMIDE. [Concomitant]
     Active Substance: CYCLOPHOSPHAMIDE
     Dosage: FIRST LINE OF TREATMENT 8 COURSES.
     Route: 065
     Dates: start: 20030416, end: 20030909
  19. SERESTA [Concomitant]
     Active Substance: OXAZEPAM
     Route: 048
  20. RISPERDAL [Concomitant]
     Active Substance: RISPERIDONE
     Route: 048
  21. METHOTREXATE [Concomitant]
     Active Substance: METHOTREXATE
     Route: 037
     Dates: start: 20030416, end: 20030909

REACTIONS (1)
  - B-cell type acute leukaemia [Recovering/Resolving]

NARRATIVE: CASE EVENT DATE: 201502
